FAERS Safety Report 17453645 (Version 4)
Quarter: 2024Q2

REPORT INFORMATION
  Report Type: Spontaneous
  Country: CA (occurrence: CA)
  Receive Date: 20200224
  Receipt Date: 20240624
  Transmission Date: 20240716
  Serious: Yes (Other)
  Sender: FDA-Public Use
  Company Number: None

PATIENT
  Sex: Female
  Weight: 83 kg

DRUGS (7)
  1. ASACOL [Suspect]
     Active Substance: MESALAMINE
     Indication: Pancreatitis
  2. IMURAN [Suspect]
     Active Substance: AZATHIOPRINE
     Indication: Pancreatitis
  3. REMICADE [Suspect]
     Active Substance: INFLIXIMAB
     Indication: Colitis ulcerative
     Route: 042
  4. IRON [Suspect]
     Active Substance: IRON
     Indication: Pancreatitis
  5. MESALAMINE [Suspect]
     Active Substance: MESALAMINE
     Indication: Pancreatitis
  6. PREDNISONE [Suspect]
     Active Substance: PREDNISONE
     Indication: Pancreatitis
  7. TRAMADOL [Suspect]
     Active Substance: TRAMADOL\TRAMADOL HYDROCHLORIDE
     Indication: Pancreatitis

REACTIONS (1)
  - Pancreatitis [Unknown]
